FAERS Safety Report 19455117 (Version 2)
Quarter: 2021Q3

REPORT INFORMATION
  Report Type: Spontaneous
  Country: JP (occurrence: JP)
  Receive Date: 20210623
  Receipt Date: 20210702
  Transmission Date: 20211014
  Serious: Yes (Life-Threatening, Hospitalization, Other)
  Sender: FDA-Public Use
  Company Number: JP-DSJP-DSJ-2021-118529

PATIENT
  Age: 80 Year
  Sex: Male

DRUGS (4)
  1. ASPIRIN                            /00002701/ [Suspect]
     Active Substance: ASPIRIN
     Dosage: 100MG/DAY
     Route: 048
     Dates: end: 20160428
  2. CLOPIDOGREL                        /01220704/ [Suspect]
     Active Substance: CLOPIDOGREL BESILATE
     Dosage: 75MG/DAY
     Route: 065
     Dates: end: 20160503
  3. LIXIANA TABLETS [Suspect]
     Active Substance: EDOXABAN TOSYLATE
     Indication: ATRIAL FIBRILLATION
     Dosage: 30MG/DAY
     Route: 048
     Dates: end: 20160511
  4. CLOPIDOGREL                        /01220704/ [Suspect]
     Active Substance: CLOPIDOGREL BESILATE
     Dosage: 300MG/DAY
     Route: 065

REACTIONS (4)
  - Ventricular fibrillation [Unknown]
  - Melaena [Unknown]
  - Colon cancer [Unknown]
  - Cardiac failure [Unknown]

NARRATIVE: CASE EVENT DATE: 20160410
